FAERS Safety Report 4635726-8 (Version None)
Quarter: 2005Q2

REPORT INFORMATION
  Report Type: 
  Country: None (occurrence: None)
  Receive Date: 20050413
  Receipt Date: 20050331
  Transmission Date: 20051028
  Serious: Yes (Hospitalization)
  Sender: FDA-Public Use
  Company Number: HQWYE505123FEB05

PATIENT
  Age: 76 Year
  Sex: Male
  Weight: 73.6 kg

DRUGS (25)
  1. RAPAMUNE [Suspect]
     Indication: PROPHYLAXIS AGAINST TRANSPLANT REJECTION
     Dosage: 3 MG 1X PER 1 DAY, ORAL
     Route: 048
     Dates: start: 20050131
  2. PREDNISONE [Suspect]
     Indication: PROPHYLAXIS AGAINST TRANSPLANT REJECTION
     Dosage: 10 MG 1X PER 1 DAY
  3. PROGRAF [Suspect]
     Indication: PROPHYLAXIS AGAINST TRANSPLANT REJECTION
     Dosage: SEE IMAGE
     Dates: end: 20050201
  4. PROGRAF [Suspect]
     Indication: PROPHYLAXIS AGAINST TRANSPLANT REJECTION
     Dosage: SEE IMAGE
     Dates: start: 20040201
  5. ATENOLOL [Concomitant]
  6. MYCELEX [Concomitant]
  7. DARVOCET-N 50 [Concomitant]
  8. FLONASE [Concomitant]
  9. THERAGRAN-M (MINERALS NOS/VITAMINS NOS) [Concomitant]
  10. PRAVACHOL [Concomitant]
  11. COUMADIN [Concomitant]
  12. CEFEPIME (CEFEPIME) [Concomitant]
  13. PROTONIX [Concomitant]
  14. FLOMAX [Concomitant]
  15. BACTRIM [Concomitant]
  16. VALCYTE [Concomitant]
  17. NEURONTIN (GABAPENTIN) [Concomitant]
  18. ALBUTEROL [Concomitant]
  19. CIPRO [Concomitant]
  20. SODIUM BICARBONATE IN PLASTIC CONTAINER [Concomitant]
  21. LANTUS [Concomitant]
  22. NOVOLOG [Concomitant]
  23. AMPHOJEL (ALUMINIUM HYDROXIDE) [Concomitant]
  24. NAFTIN (NAFTIFINE HYDROCHLORIDE) [Concomitant]
  25. MIRALAX [Concomitant]

REACTIONS (11)
  - ASTHENIA [None]
  - ATRIAL FIBRILLATION [None]
  - DIZZINESS [None]
  - DYSARTHRIA [None]
  - HYPERTENSION [None]
  - METABOLIC ENCEPHALOPATHY [None]
  - PSEUDOMONAL BACTERAEMIA [None]
  - PULMONARY EMBOLISM [None]
  - SLEEP APNOEA SYNDROME [None]
  - TREMOR [None]
  - URINARY TRACT INFECTION [None]
